FAERS Safety Report 5228400-0 (Version None)
Quarter: 2007Q1

REPORT INFORMATION
  Report Type: 
  Country: None (occurrence: None)
  Receive Date: 20070131
  Receipt Date: 20070131
  Transmission Date: 20070707
  Serious: No
  Sender: FDA-Public Use
  Company Number: None

PATIENT
  Sex: Male
  Weight: 3.9 kg

DRUGS (2)
  1. TPN [Suspect]
     Dosage: 16 ML/HR CONTINUOUS IV
     Route: 042
     Dates: start: 20061008, end: 20061008
  2. INTRALIPID 10% [Suspect]
     Dosage: 1 ML HR CONTINUOUS IV
     Route: 042
     Dates: start: 20061008, end: 20061008

REACTIONS (3)
  - INFUSION SITE DISCOLOURATION [None]
  - INFUSION SITE REACTION [None]
  - OEDEMA PERIPHERAL [None]
